FAERS Safety Report 6018791-5 (Version None)
Quarter: 2008Q4

REPORT INFORMATION
  Report Type: 
  Country: None (occurrence: None)
  Receive Date: 20081222
  Receipt Date: 20081205
  Transmission Date: 20090506
  Serious: Yes (Hospitalization, Other)
  Sender: FDA-Public Use
  Company Number: KV200800982

PATIENT
  Age: 55 Year
  Sex: Male

DRUGS (11)
  1. ISOSORBIDE MONONITRATE [Suspect]
     Indication: CARDIAC DISORDER
     Dosage: 60 MG, BID, ORAL
     Route: 048
     Dates: start: 20080701, end: 20081119
  2. LISINOPRIL [Concomitant]
  3. CRESTOR [Concomitant]
  4. TOPROL-XL [Concomitant]
  5. SIMVASTATIN [Concomitant]
  6. ALBUTEROL /00139501/ (SALBUTAMOL) INHALER [Concomitant]
  7. COUMADIN [Concomitant]
  8. NITROGLYCERIN [Concomitant]
  9. LASIX [Concomitant]
  10. METFORMIN HCL [Concomitant]
  11. CELEXA /00582602/ (CITALOPRAM HYDROBROMIDE) [Concomitant]

REACTIONS (9)
  - ASTHENIA [None]
  - BLOOD PRESSURE DECREASED [None]
  - BRAIN STEM INFARCTION [None]
  - CEREBROVASCULAR ACCIDENT [None]
  - DIARRHOEA [None]
  - LIVER FUNCTION TEST ABNORMAL [None]
  - NAUSEA [None]
  - PRODUCT QUALITY ISSUE [None]
  - RENAL FUNCTION TEST ABNORMAL [None]
